FAERS Safety Report 9350064 (Version 2)
Quarter: 2013Q2

REPORT INFORMATION
  Report Type: Spontaneous
  Country: PL (occurrence: PL)
  Receive Date: 20130615
  Receipt Date: 20130615
  Transmission Date: 20140414
  Serious: Yes (Other)
  Sender: FDA-Public Use
  Company Number: PHHY2013PL056278

PATIENT
  Age: 19 Year
  Sex: Female

DRUGS (26)
  1. SANDIMMUN NEORAL [Suspect]
     Indication: IMMUNOSUPPRESSION
     Dates: start: 200702, end: 200703
  2. SANDIMMUN NEORAL [Suspect]
     Dates: start: 201004
  3. SANDIMMUN NEORAL [Suspect]
     Dates: start: 201105
  4. METHYLPREDNISOLONE [Suspect]
     Indication: IMMUNOSUPPRESSION
     Route: 042
     Dates: start: 200409
  5. METHYLPREDNISOLONE [Suspect]
     Route: 042
     Dates: start: 200807, end: 200901
  6. PREDNISONE [Suspect]
     Indication: IMMUNOSUPPRESSION
     Dosage: 60 MG, UNK
     Dates: start: 200409
  7. PREDNISONE [Suspect]
     Dates: start: 200412, end: 200511
  8. PREDNISONE [Suspect]
     Route: 048
     Dates: start: 200511, end: 200602
  9. PREDNISONE [Suspect]
     Dates: start: 200705, end: 200812
  10. PREDNISONE [Suspect]
     Dates: start: 201002
  11. PREDNISONE [Suspect]
     Dates: start: 201004
  12. PREDNISONE [Suspect]
     Dates: start: 201105
  13. MYCOPHENOLATE MOFETIL [Suspect]
     Indication: IMMUNOSUPPRESSION
     Dates: start: 200705, end: 200812
  14. MYCOPHENOLATE MOFETIL [Suspect]
     Dates: start: 200807, end: 200901
  15. MYCOPHENOLATE MOFETIL [Suspect]
     Dates: start: 201002
  16. CYCLOPHOSPHAMIDE [Suspect]
     Indication: IMMUNOSUPPRESSION
     Dosage: 1 G, UNK
     Route: 042
     Dates: start: 200412, end: 200511
  17. CYCLOPHOSPHAMIDE [Suspect]
     Route: 042
     Dates: start: 200602, end: 200608
  18. CYCLOPHOSPHAMIDE [Suspect]
     Route: 042
     Dates: start: 200902, end: 200903
  19. CYCLOPHOSPHAMIDE [Suspect]
     Route: 042
     Dates: start: 201001
  20. ARECHIN [Suspect]
     Indication: IMMUNOSUPPRESSION
     Dates: start: 200412, end: 200511
  21. ARECHIN [Suspect]
     Dates: start: 200511, end: 200602
  22. IMURAN [Suspect]
     Indication: IMMUNOSUPPRESSION
     Dates: start: 200609, end: 200702
  23. RITUXIMAB [Suspect]
     Indication: IMMUNOSUPPRESSION
     Dates: start: 20100123
  24. RITUXIMAB [Suspect]
     Dates: start: 20100206
  25. IMMUNOGLOBULINS [Suspect]
     Indication: IMMUNOSUPPRESSION
     Dosage: 100 G, UNK
     Dates: start: 200807, end: 200901
  26. IMMUNOGLOBULINS [Suspect]
     Dosage: 100 G, UNK
     Route: 042
     Dates: start: 200912

REACTIONS (23)
  - Systemic lupus erythematosus [Unknown]
  - Renal failure chronic [Unknown]
  - Pneumonia [Unknown]
  - Pancreatitis [Unknown]
  - Diarrhoea [Unknown]
  - Oedema [Unknown]
  - Arthralgia [Unknown]
  - Nephrogenic anaemia [Unknown]
  - Haematuria [Unknown]
  - Proteinuria [Unknown]
  - Hypoproteinaemia [Unknown]
  - Polyuria [Unknown]
  - Hypercholesterolaemia [Unknown]
  - Anaemia [Unknown]
  - Renal impairment [Unknown]
  - Focal segmental glomerulosclerosis [Unknown]
  - Pyrexia [Unknown]
  - Asthenia [Unknown]
  - Hypertension [Unknown]
  - Nephrotic syndrome [Unknown]
  - Leukopenia [Unknown]
  - Headache [Recovered/Resolved]
  - Drug ineffective [Unknown]
